FAERS Safety Report 13704022 (Version 1)
Quarter: 2017Q2

REPORT INFORMATION
  Report Type: Spontaneous
  Country: JP (occurrence: JP)
  Receive Date: 20170629
  Receipt Date: 20170629
  Transmission Date: 20170830
  Serious: Yes (Other)
  Sender: FDA-Public Use
  Company Number: GXJP2017JP001117

PATIENT
  Age: 41 Year
  Sex: Male

DRUGS (9)
  1. NIFEDIPINE. [Interacting]
     Active Substance: NIFEDIPINE
     Indication: MALIGNANT HYPERTENSION
     Dosage: UNK
     Route: 065
  2. PREDNISOLONE. [Concomitant]
     Active Substance: PREDNISOLONE
     Indication: INFECTIVE UVEITIS
     Route: 048
  3. ISONIAZID. [Concomitant]
     Active Substance: ISONIAZID
     Indication: INFECTIVE UVEITIS
     Route: 065
     Dates: start: 20161208
  4. ETHAMBUTOL DIHYDROCHLORIDE [Concomitant]
     Active Substance: ETHAMBUTOL HYDROCHLORIDE
     Indication: INFECTIVE UVEITIS
     Route: 065
     Dates: start: 20161208
  5. AMLODIPINE [Interacting]
     Active Substance: AMLODIPINE BESYLATE
     Indication: MALIGNANT HYPERTENSION
     Route: 048
  6. RIFAMPICIN CAPSULES [Suspect]
     Active Substance: RIFAMPIN
     Indication: INFECTIVE UVEITIS
     Route: 048
     Dates: start: 20161208
  7. NIFEDIPINE. [Interacting]
     Active Substance: NIFEDIPINE
     Route: 065
     Dates: start: 20170106
  8. AMLODIPINE [Interacting]
     Active Substance: AMLODIPINE BESYLATE
     Dosage: UNK
     Route: 048
     Dates: start: 20170102
  9. PYRAZINAMIDE. [Concomitant]
     Active Substance: PYRAZINAMIDE
     Indication: INFECTIVE UVEITIS
     Route: 065
     Dates: start: 20161208

REACTIONS (3)
  - Malignant hypertension [Unknown]
  - Hyperaldosteronism [Unknown]
  - Drug interaction [Recovered/Resolved]
